FAERS Safety Report 7780494-4 (Version None)
Quarter: 2011Q3

REPORT INFORMATION
  Report Type: 
  Country: None (occurrence: None)
  Receive Date: 20110927
  Receipt Date: 20110824
  Transmission Date: 20111222
  Serious: No
  Sender: FDA-Public Use
  Company Number: US-GLAXOSMITHKLINE-A0942160A

PATIENT
  Age: 27 Year
  Sex: Female

DRUGS (6)
  1. THYROXIN SODIUM [Concomitant]
  2. PRENATAL VITAMINS [Concomitant]
  3. FOLIC ACID [Concomitant]
  4. LIPITOR [Concomitant]
  5. TOPAMAX [Concomitant]
  6. LAMICTAL [Suspect]
     Indication: EPILEPSY
     Dosage: 375MG TWICE PER DAY
     Route: 048

REACTIONS (3)
  - LIVE BIRTH [None]
  - ALOPECIA [None]
  - MATERNAL EXPOSURE DURING PREGNANCY [None]
